FAERS Safety Report 9887300 (Version 1)
Quarter: 2014Q1

REPORT INFORMATION
  Report Type: Spontaneous
  Country: US (occurrence: US)
  Receive Date: 20140211
  Receipt Date: 20140211
  Transmission Date: 20141002
  Serious: No
  Sender: FDA-Public Use
  Company Number: US-BIOGENIDEC-2014BI010624

PATIENT
  Age: 64 Year
  Sex: Female
  Weight: 85 kg

DRUGS (10)
  1. TECFIDERA [Suspect]
     Indication: MULTIPLE SCLEROSIS
     Route: 048
     Dates: start: 20140106
  2. TECFIDERA [Suspect]
     Indication: MULTIPLE SCLEROSIS
     Route: 048
     Dates: start: 201401
  3. VITAMIN B [Concomitant]
  4. VITAMIN D [Concomitant]
  5. BACLOFEN [Concomitant]
  6. AMITRIPTYLINE [Concomitant]
  7. CALTRATE [Concomitant]
  8. FOSAMAX [Concomitant]
  9. METOPROLOL [Concomitant]
  10. TRIAMTERENE [Concomitant]

REACTIONS (5)
  - Prescribed underdose [Not Recovered/Not Resolved]
  - Flushing [Recovered/Resolved]
  - Diarrhoea [Not Recovered/Not Resolved]
  - Nausea [Unknown]
  - Abdominal pain upper [Unknown]
